FAERS Safety Report 10144173 (Version 2)
Quarter: 2014Q2

REPORT INFORMATION
  Report Type: Spontaneous
  Country: FR (occurrence: FR)
  Receive Date: 20140430
  Receipt Date: 20140507
  Transmission Date: 20141212
  Serious: Yes (Other)
  Sender: FDA-Public Use
  Company Number: PHHY2014FR051071

PATIENT
  Sex: Female

DRUGS (2)
  1. CEFTRIAXONE GNR [Suspect]
     Indication: ACUTE SINUSITIS
     Dosage: 1 DF, QD (FOR 7 DAYS)
     Route: 030
     Dates: start: 20031126
  2. SOLUMEDROL [Concomitant]
     Indication: ACUTE SINUSITIS
     Dosage: 1 DF, QD
     Route: 030

REACTIONS (2)
  - Foetal death [Unknown]
  - Maternal exposure during pregnancy [Unknown]
